FAERS Safety Report 7953659-6 (Version None)
Quarter: 2011Q4

REPORT INFORMATION
  Report Type: 
  Country: None (occurrence: None)
  Receive Date: 20111202
  Receipt Date: 20111124
  Transmission Date: 20120403
  Serious: Yes (Death, Hospitalization)
  Sender: FDA-Public Use
  Company Number: JP-AMGEN-JPNCT2011046772

PATIENT
  Age: 79 Year
  Sex: Female
  Weight: 45 kg

DRUGS (12)
  1. PANITUMUMAB [Suspect]
     Indication: COLORECTAL CANCER
     Dosage: 4.8 MG/KG, Q2WK
     Route: 041
     Dates: start: 20110520, end: 20110520
  2. VITAMEDIN [Concomitant]
     Dosage: UNK
     Route: 048
  3. ADALAT [Concomitant]
     Dosage: UNK
     Route: 048
  4. IRINOTECAN HCL [Concomitant]
     Indication: COLORECTAL CANCER
     Route: 041
     Dates: start: 20110520
  5. CORTICOSTEROIDS [Concomitant]
     Indication: PROPHYLAXIS
     Dosage: UNK
     Route: 065
  6. PANITUMUMAB [Suspect]
     Dosage: 4.8 MG/KG, Q2WK
     Route: 041
     Dates: start: 20110720, end: 20110720
  7. LOXONIN [Concomitant]
     Dosage: UNK
     Route: 048
  8. MUCOSTA [Concomitant]
     Dosage: UNK
     Route: 048
  9. PANITUMUMAB [Suspect]
     Dosage: 4.8 MG/KG, Q2WK
     Route: 041
     Dates: start: 20110819, end: 20110819
  10. ANTIHISTAMINES [Concomitant]
     Indication: PROPHYLAXIS
     Dosage: UNK
     Route: 065
  11. ALFAROL [Concomitant]
     Dosage: UNK
     Route: 048
  12. LIVALO [Concomitant]
     Dosage: UNK
     Route: 048

REACTIONS (2)
  - COLORECTAL CANCER [None]
  - WHITE BLOOD CELL COUNT DECREASED [None]
